FAERS Safety Report 14959899 (Version 8)
Quarter: 2019Q1

REPORT INFORMATION
  Report Type: Report from Study
  Country: US (occurrence: US)
  Receive Date: 20180531
  Receipt Date: 20190108
  Transmission Date: 20190417
  Serious: Yes (Death, Hospitalization, Other)
  Sender: FDA-Public Use
  Company Number: US-ACTELION-A-NJ2016-146989

PATIENT
  Age: 67 Year
  Sex: Male
  Weight: 108.84 kg

DRUGS (7)
  1. MORPHINE [Concomitant]
     Active Substance: MORPHINE
     Dosage: 4 UNK, UNK
  2. FENTANYL. [Concomitant]
     Active Substance: FENTANYL
     Dosage: 50 MCG, UNK
     Dates: start: 20180501
  3. ADCIRCA [Concomitant]
     Active Substance: TADALAFIL
  4. OPSUMIT [Suspect]
     Active Substance: MACITENTAN
     Indication: PULMONARY HYPERTENSION
     Dosage: 10 MG, QD
     Route: 048
     Dates: start: 20160607, end: 20180426
  5. OXYCODONE [Concomitant]
     Active Substance: OXYCODONE
     Dosage: 10 MG, UNK
     Dates: start: 20180501
  6. ZOFRAN [Concomitant]
     Active Substance: ONDANSETRON HYDROCHLORIDE
     Dosage: 4 MG, UNK
     Dates: start: 20180426
  7. ELIQUIS [Concomitant]
     Active Substance: APIXABAN

REACTIONS (27)
  - Pancreatic carcinoma metastatic [Fatal]
  - Cholecystitis [Not Recovered/Not Resolved]
  - Sepsis [Not Recovered/Not Resolved]
  - Renal injury [Not Recovered/Not Resolved]
  - Hepatic cancer metastatic [Fatal]
  - Blood bilirubin increased [Not Recovered/Not Resolved]
  - Blood alkaline phosphatase increased [Not Recovered/Not Resolved]
  - Blood albumin decreased [Not Recovered/Not Resolved]
  - International normalised ratio increased [Not Recovered/Not Resolved]
  - Fibrin D dimer increased [Unknown]
  - Blood lactic acid increased [Unknown]
  - Carbohydrate antigen 19-9 increased [Unknown]
  - Fatigue [Fatal]
  - Liver injury [Not Recovered/Not Resolved]
  - Aspartate aminotransferase increased [Not Recovered/Not Resolved]
  - Pulmonary hypertension [Unknown]
  - Pain [Fatal]
  - Peripheral swelling [Fatal]
  - Pain in extremity [Fatal]
  - Rhabdomyolysis [Not Recovered/Not Resolved]
  - Dyspnoea [Unknown]
  - Fall [Not Recovered/Not Resolved]
  - Liver function test increased [Not Recovered/Not Resolved]
  - Cardiac flutter [Unknown]
  - Adenocarcinoma [Unknown]
  - Hepatic mass [Unknown]
  - Platelet count decreased [Unknown]

NARRATIVE: CASE EVENT DATE: 20161214
